FAERS Safety Report 10089224 (Version 2)
Quarter: 2014Q2

REPORT INFORMATION
  Report Type: Spontaneous
  Country: US (occurrence: US)
  Receive Date: 20140421
  Receipt Date: 20140421
  Transmission Date: 20141212
  Serious: No
  Sender: FDA-Public Use
  Company Number: US-DRREDDYS-USA/USA/14/0037663

PATIENT
  Age: 15 Year
  Sex: Male

DRUGS (2)
  1. ZENATANE [Suspect]
     Indication: ACNE
     Route: 048
     Dates: start: 20131214
  2. ZENATANE [Suspect]
     Route: 048
     Dates: start: 20140111

REACTIONS (4)
  - Lip dry [Unknown]
  - Oral mucosal exfoliation [Unknown]
  - Drug ineffective [Unknown]
  - Product quality issue [Unknown]
